FAERS Safety Report 7595910-0 (Version None)
Quarter: 2011Q3

REPORT INFORMATION
  Report Type: 
  Country: None (occurrence: None)
  Receive Date: 20110707
  Receipt Date: 20110622
  Transmission Date: 20111222
  Serious: No
  Sender: FDA-Public Use
  Company Number: US-B.I. PHARMACEUTICALS,INC./RIDGEFIELD-2011-BP-16071BP

PATIENT
  Sex: Male

DRUGS (8)
  1. POTASSIUM [Concomitant]
     Indication: ELECTROLYTE SUBSTITUTION THERAPY
  2. LISINOPRIL [Concomitant]
     Indication: CARDIAC DISORDER
  3. DIGOXIN [Concomitant]
     Indication: CARDIAC DISORDER
  4. FUROSEMIDE [Concomitant]
     Indication: FLUID RETENTION
  5. ATENOLOL [Concomitant]
     Indication: CARDIAC DISORDER
  6. PRADAXA [Suspect]
     Indication: ATRIAL FIBRILLATION
     Dosage: 300 MG
     Route: 048
     Dates: start: 20110401
  7. METFORMIN HCL [Concomitant]
     Indication: DIABETES MELLITUS
  8. GLYBURIDE [Concomitant]
     Indication: DIABETES MELLITUS

REACTIONS (2)
  - DYSPNOEA [None]
  - HAEMATURIA [None]
